FAERS Safety Report 14909924 (Version 17)
Quarter: 2020Q3

REPORT INFORMATION
  Report Type: Report from Study
  Country: CA (occurrence: CA)
  Receive Date: 20180517
  Receipt Date: 20200924
  Transmission Date: 20201102
  Serious: Yes (Hospitalization, Other)
  Sender: FDA-Public Use
  Company Number: PHHY2018CA067605

PATIENT
  Age: 72 Year
  Sex: Male

DRUGS (6)
  1. SANDOSTATIN LAR DEPOT [Suspect]
     Active Substance: OCTREOTIDE ACETATE
  2. AMLODIPINE [Concomitant]
     Active Substance: AMLODIPINE BESYLATE
     Dosage: 5 MG, QD
     Route: 065
     Dates: start: 20200812
  3. AMLODIPINE [Concomitant]
     Active Substance: AMLODIPINE BESYLATE
     Indication: BLOOD PRESSURE INCREASED
     Dosage: 2.5 MG, QD
     Route: 065
     Dates: start: 20180411
  4. SANDOSTATIN LAR DEPOT [Suspect]
     Active Substance: OCTREOTIDE ACETATE
     Indication: NEUROENDOCRINE TUMOUR
     Dosage: 40 MG, QMO (EVERY 4 WEEKS)
     Route: 030
     Dates: start: 20190524
  5. SANDOSTATIN LAR DEPOT [Suspect]
     Active Substance: OCTREOTIDE ACETATE
     Indication: CARCINOID TUMOUR
     Dosage: 20 MG, QMO
     Route: 030
     Dates: start: 20180315, end: 20180509
  6. RAMIPRIL. [Concomitant]
     Active Substance: RAMIPRIL
     Indication: HYPERTENSION
     Dosage: 10 MG, BID
     Route: 048

REACTIONS (31)
  - Scar [Unknown]
  - Second primary malignancy [Unknown]
  - Metastases to liver [Unknown]
  - Skin disorder [Recovering/Resolving]
  - Urinary retention [Unknown]
  - Intestinal obstruction [Recovered/Resolved]
  - Vomiting [Recovered/Resolved]
  - Nausea [Unknown]
  - Nausea [Recovered/Resolved]
  - Dysuria [Unknown]
  - Pulse abnormal [Unknown]
  - Abdominal pain [Unknown]
  - Blood pressure diastolic decreased [Unknown]
  - Abdominal pain [Recovered/Resolved]
  - Blood pressure systolic increased [Unknown]
  - Infection [Unknown]
  - Bladder disorder [Unknown]
  - Flatulence [Recovered/Resolved]
  - Squamous cell carcinoma [Unknown]
  - Malignant neoplasm progression [Unknown]
  - Body temperature decreased [Unknown]
  - Sleep disorder [Unknown]
  - Malaise [Unknown]
  - Cystitis [Unknown]
  - Abdominal distension [Recovered/Resolved]
  - Bowel movement irregularity [Unknown]
  - Adenocarcinoma of colon [Unknown]
  - Nasopharyngitis [Unknown]
  - Pyrexia [Recovered/Resolved]
  - Feeling hot [Unknown]
  - Prostate examination abnormal [Unknown]

NARRATIVE: CASE EVENT DATE: 201804
